FAERS Safety Report 7981884-7 (Version None)
Quarter: 2011Q4

REPORT INFORMATION
  Report Type: 
  Country: None (occurrence: None)
  Receive Date: 20111213
  Receipt Date: 20111129
  Transmission Date: 20120403
  Serious: Yes (Hospitalization)
  Sender: FDA-Public Use
  Company Number: 2011AP002896

PATIENT
  Age: 54 Year
  Sex: Female

DRUGS (5)
  1. SIMVASTATIN [Concomitant]
  2. METFORMIN HCL [Concomitant]
  3. ACETYLSALICYLIC ACID SRT [Concomitant]
  4. LITHIUM CARBONATE [Suspect]
     Indication: PRODUCT USED FOR UNKNOWN INDICATION
  5. LISINOPRIL [Concomitant]

REACTIONS (12)
  - CLONUS [None]
  - BLOOD PRESSURE SYSTOLIC INCREASED [None]
  - RENAL FAILURE [None]
  - DIET REFUSAL [None]
  - ANTIPSYCHOTIC DRUG LEVEL INCREASED [None]
  - MENTAL STATUS CHANGES [None]
  - HYPERREFLEXIA [None]
  - DRY SKIN [None]
  - MUCOUS MEMBRANE DISORDER [None]
  - TREMOR [None]
  - SOMNOLENCE [None]
  - TOXICITY TO VARIOUS AGENTS [None]
